FAERS Safety Report 17607795 (Version 2)
Quarter: 2020Q2

REPORT INFORMATION
  Report Type: Spontaneous
  Country: CA (occurrence: CA)
  Receive Date: 20200401
  Receipt Date: 20200407
  Transmission Date: 20200713
  Serious: Yes (Hospitalization)
  Sender: FDA-Public Use
  Company Number: CA-B.I. PHARMACEUTICALS,INC./RIDGEFIELD-2020-BI-016744

PATIENT
  Age: 61 Year
  Sex: Male

DRUGS (1)
  1. JARDIANCE [Suspect]
     Active Substance: EMPAGLIFLOZIN
     Indication: TYPE 2 DIABETES MELLITUS
     Route: 048

REACTIONS (10)
  - Euglycaemic diabetic ketoacidosis [Unknown]
  - Acute coronary syndrome [Unknown]
  - Nausea [Recovered/Resolved]
  - Chest pain [Recovered/Resolved]
  - Anion gap increased [Unknown]
  - Arterial occlusive disease [Unknown]
  - Metabolic acidosis [Unknown]
  - Blood ketone body increased [Unknown]
  - Blood glucose abnormal [Unknown]
  - Urine ketone body present [Unknown]
